FAERS Safety Report 19926858 (Version 1)
Quarter: 2021Q4

REPORT INFORMATION
  Report Type: Spontaneous
  Country: US (occurrence: US)
  Receive Date: 20211006
  Receipt Date: 20211006
  Transmission Date: 20220303
  Serious: No
  Sender: FDA-Public Use
  Company Number: 2021A735700

PATIENT
  Sex: Female

DRUGS (2)
  1. LYNPARZA [Suspect]
     Active Substance: OLAPARIB
     Indication: Pancreatic carcinoma
     Dosage: HALF DOSE, DAILY
     Route: 048
     Dates: start: 2021
  2. LYNPARZA [Suspect]
     Active Substance: OLAPARIB
     Indication: Plasma cell myeloma
     Dosage: HALF DOSE, DAILY
     Route: 048
     Dates: start: 2021

REACTIONS (6)
  - Fatigue [Unknown]
  - Feeling abnormal [Unknown]
  - Nausea [Unknown]
  - Somnolence [Unknown]
  - Impaired quality of life [Unknown]
  - Off label use [Unknown]
